FAERS Safety Report 12850169 (Version 1)
Quarter: 2016Q4

REPORT INFORMATION
  Report Type: Spontaneous
  Country: US (occurrence: US)
  Receive Date: 20161014
  Receipt Date: 20161014
  Transmission Date: 20170207
  Serious: Yes (Other)
  Sender: FDA-Public Use
  Company Number: US-AMGEN-USASP2016138752

PATIENT
  Age: 81 Year
  Sex: Female

DRUGS (2)
  1. METHOTREXATE. [Concomitant]
     Active Substance: METHOTREXATE
     Dosage: UNK
     Dates: start: 1989
  2. ENBREL [Suspect]
     Active Substance: ETANERCEPT
     Indication: RHEUMATOID ARTHRITIS
     Dosage: 50 MG, QWK
     Route: 065
     Dates: start: 2000

REACTIONS (9)
  - Ankle arthroplasty [Unknown]
  - Incorrect product storage [Unknown]
  - Drug dose omission [Unknown]
  - Hip arthroplasty [Unknown]
  - Knee operation [Unknown]
  - Limb operation [Unknown]
  - Shoulder operation [Unknown]
  - Memory impairment [Unknown]
  - Surgery [Unknown]

NARRATIVE: CASE EVENT DATE: 20160929
